FAERS Safety Report 24247099 (Version 2)
Quarter: 2024Q4

REPORT INFORMATION
  Report Type: Spontaneous
  Country: CA (occurrence: CA)
  Receive Date: 20240826
  Receipt Date: 20241009
  Transmission Date: 20250115
  Serious: Yes (Other)
  Sender: INTERCEPT PHARMACEUTICALS
  Company Number: CA-ADVANZ PHARMA-202408006817

PATIENT
  Age: 71 Year
  Sex: Female

DRUGS (6)
  1. OCALIVA [Suspect]
     Active Substance: OBETICHOLIC ACID
     Indication: Primary biliary cholangitis
     Dosage: 5 MG, QD (OCALIVA)
     Route: 048
     Dates: start: 20240715
  2. OCALIVA [Suspect]
     Active Substance: OBETICHOLIC ACID
     Dosage: 0.5 DOSAGE FORM (TOOK 1/2 PILL)
     Route: 048
     Dates: start: 20240721
  3. OCALIVA [Suspect]
     Active Substance: OBETICHOLIC ACID
     Dosage: 0.25 DOSAGE FORM (TOOK 1/4 PILL)
     Route: 048
     Dates: start: 20240727
  4. OCALIVA [Suspect]
     Active Substance: OBETICHOLIC ACID
     Dosage: 0.25 DOSAGE FORM (TOOK 1/4 PILL)
     Route: 048
     Dates: start: 20240812
  5. OCALIVA [Suspect]
     Active Substance: OBETICHOLIC ACID
     Dosage: 0.5 DOSAGE FORM
     Route: 048
     Dates: start: 20240715, end: 202409
  6. OCALIVA [Suspect]
     Active Substance: OBETICHOLIC ACID
     Dosage: 0.25 DOSAGE FORM (THEN TRIED 1/2 TABLET AND 1/4 TABLET(OCALIVA)
     Route: 048
     Dates: start: 20240715, end: 202409

REACTIONS (23)
  - Akinesia [Unknown]
  - Hypoaesthesia oral [Recovering/Resolving]
  - Limb discomfort [Recovering/Resolving]
  - Paraesthesia [Recovering/Resolving]
  - Feeling hot [Recovering/Resolving]
  - Headache [Recovering/Resolving]
  - Hangover [Recovering/Resolving]
  - Dysphagia [Recovered/Resolved]
  - Gait inability [Recovered/Resolved]
  - Dysphemia [Recovered/Resolved]
  - Thinking abnormal [Recovered/Resolved]
  - Dry mouth [Recovering/Resolving]
  - Brain fog [Recovering/Resolving]
  - Blood pressure decreased [Recovering/Resolving]
  - Heart rate decreased [Recovering/Resolving]
  - Burning sensation [Recovering/Resolving]
  - Sluggishness [Recovering/Resolving]
  - Lethargy [Not Recovered/Not Resolved]
  - Illness [Unknown]
  - Gamma-glutamyltransferase abnormal [Unknown]
  - Aspartate aminotransferase abnormal [Unknown]
  - Asthenia [Recovered/Resolved]
  - Wrong technique in product usage process [Unknown]

NARRATIVE: CASE EVENT DATE: 20240715
